FAERS Safety Report 16993790 (Version 1)
Quarter: 2019Q4

REPORT INFORMATION
  Report Type: Spontaneous
  Country: US (occurrence: US)
  Receive Date: 20190923
  Receipt Date: 20190923
  Transmission Date: 20200122
  Serious: Yes (Hospitalization)
  Sender: FDA-Public Use
  Company Number: None

PATIENT
  Age: 78 Year
  Sex: Female

DRUGS (1)
  1. ENBREL [Suspect]
     Active Substance: ETANERCEPT
     Indication: RHEUMATOID ARTHRITIS
     Route: 058
     Dates: start: 20180409

REACTIONS (5)
  - Road traffic accident [None]
  - Rib fracture [None]
  - Upper limb fracture [None]
  - Oesophageal injury [None]
  - Oesophageal haemorrhage [None]

NARRATIVE: CASE EVENT DATE: 20190629
